FAERS Safety Report 8071573-5 (Version None)
Quarter: 2012Q1

REPORT INFORMATION
  Report Type: 
  Country: None (occurrence: None)
  Receive Date: 20120125
  Receipt Date: 20120118
  Transmission Date: 20120608
  Serious: Yes (Other)
  Sender: FDA-Public Use
  Company Number: US-PFIZER INC-2012014510

PATIENT
  Age: 74 Year
  Sex: Female

DRUGS (1)
  1. GLUCOTROL XL [Suspect]
     Dosage: 5 MG, 2X/DAY (IN THE MORNING AND IN THE EVENING)

REACTIONS (2)
  - DIABETES MELLITUS [None]
  - CARDIAC DISORDER [None]
